FAERS Safety Report 13733747 (Version 1)
Quarter: 2017Q3

REPORT INFORMATION
  Report Type: Spontaneous
  Country: US (occurrence: US)
  Receive Date: 20170707
  Receipt Date: 20170707
  Transmission Date: 20171127
  Serious: No
  Sender: FDA-Public Use
  Company Number: US-BEH-2017081825

PATIENT
  Sex: Female

DRUGS (1)
  1. HAEMATE P [Suspect]
     Active Substance: ANTIHEMOPHILIC FACTOR HUMAN
     Indication: VON WILLEBRAND^S DISEASE
     Dosage: 4500 RCOF IU, QD, Q12HR PRN
     Route: 042
     Dates: start: 20150928

REACTIONS (1)
  - Haemoglobin decreased [Unknown]
